FAERS Safety Report 23337083 (Version 2)
Quarter: 2024Q1

REPORT INFORMATION
  Report Type: Spontaneous
  Country: DK (occurrence: DK)
  Receive Date: 20231226
  Receipt Date: 20240215
  Transmission Date: 20240410
  Serious: Yes (Other)
  Sender: FDA-Public Use
  Company Number: DK-CELLTRION INC.-2023DK024389

PATIENT

DRUGS (5)
  1. RITUXIMAB [Suspect]
     Active Substance: RITUXIMAB
     Indication: Diffuse large B-cell lymphoma
     Dosage: TREATED 6 TIMES
  2. DOXORUBICIN HYDROCHLORIDE [Suspect]
     Active Substance: DOXORUBICIN HYDROCHLORIDE
     Indication: Diffuse large B-cell lymphoma
     Dosage: TREATED 6 TIMES (R-CHOP)
  3. CYCLOPHOSPHAMIDE [Suspect]
     Active Substance: CYCLOPHOSPHAMIDE
     Indication: Diffuse large B-cell lymphoma
     Dosage: TREATED 6 TIMES
  4. PREDNISOLONE [Suspect]
     Active Substance: PREDNISOLONE
     Indication: Diffuse large B-cell lymphoma
     Dosage: TREATED 6 TIMES
  5. VINCRISTINE SULFATE [Suspect]
     Active Substance: VINCRISTINE SULFATE
     Indication: Diffuse large B-cell lymphoma
     Dosage: TREATED 6 TIMES

REACTIONS (10)
  - Sarcoidosis [Unknown]
  - Myocardial ischaemia [Unknown]
  - Cardiac failure [Unknown]
  - Cardiac sarcoidosis [Unknown]
  - Pulmonary embolism [Unknown]
  - Lymphadenopathy [Unknown]
  - Lymphadenopathy mediastinal [Unknown]
  - Pleural effusion [Unknown]
  - Dyspnoea [Unknown]
  - Lung infiltration [Unknown]
